FAERS Safety Report 24113844 (Version 2)
Quarter: 2024Q3

REPORT INFORMATION
  Report Type: Report from Study
  Country: US (occurrence: US)
  Receive Date: 20240720
  Receipt Date: 20240728
  Transmission Date: 20241016
  Serious: Yes (Other)
  Sender: ABBVIE
  Company Number: US-ABBVIE-5844479

PATIENT
  Age: 76 Year
  Sex: Male
  Weight: 72 kg

DRUGS (7)
  1. CREON [Suspect]
     Active Substance: PANCRELIPASE AMYLASE\PANCRELIPASE LIPASE\PANCRELIPASE PROTEASE
     Indication: Pancreatitis chronic
     Dosage: 2 CAPS PER MEAL AND 1 WITH A SNACK
     Route: 048
     Dates: start: 202405
  2. FINASTERIDE [Concomitant]
     Active Substance: FINASTERIDE
     Indication: Prostatomegaly
     Dosage: 5 MILLIGRAM
  3. METFORMIN [Concomitant]
     Active Substance: METFORMIN HYDROCHLORIDE
     Indication: Diabetes mellitus
  4. LOSARTAN [Concomitant]
     Active Substance: LOSARTAN
     Indication: Hypertension
     Dosage: 100 MILLIGRAM
  5. HYDROCHLOROTHIAZIDE [Concomitant]
     Active Substance: HYDROCHLOROTHIAZIDE
     Indication: Blood pressure measurement
     Dosage: 25 MILLIGRAM
  6. FARXIGA [Concomitant]
     Active Substance: DAPAGLIFLOZIN PROPANEDIOL
     Indication: Chronic kidney disease
  7. TAMSULOSIN [Concomitant]
     Active Substance: TAMSULOSIN
     Indication: Prostatomegaly
     Dosage: 0.4 MILLIGRAM

REACTIONS (1)
  - Basal cell carcinoma [Recovering/Resolving]

NARRATIVE: CASE EVENT DATE: 20240501
